FAERS Safety Report 13911316 (Version 1)
Quarter: 2017Q3

REPORT INFORMATION
  Report Type: Spontaneous
  Country: US (occurrence: US)
  Receive Date: 20170828
  Receipt Date: 20170828
  Transmission Date: 20171127
  Serious: No
  Sender: FDA-Public Use
  Company Number: US-SA-2017SA099280

PATIENT
  Age: 26 Year
  Sex: Female

DRUGS (2)
  1. CERDELGA [Suspect]
     Active Substance: ELIGLUSTAT
     Route: 065
     Dates: start: 20160622
  2. CEREZYME [Suspect]
     Active Substance: IMIGLUCERASE
     Route: 065

REACTIONS (1)
  - Exposure during pregnancy [Unknown]

NARRATIVE: CASE EVENT DATE: 2016
